FAERS Safety Report 7233095-0 (Version None)
Quarter: 2011Q1

REPORT INFORMATION
  Report Type: 
  Country: None (occurrence: None)
  Receive Date: 20110119
  Receipt Date: 20110111
  Transmission Date: 20110831
  Serious: Yes (Hospitalization)
  Sender: FDA-Public Use
  Company Number: JP-AMGEN-JPNCT2010009365

PATIENT

DRUGS (12)
  1. EMEND [Concomitant]
     Dosage: UNK
     Route: 048
  2. PANITUMUMAB [Suspect]
     Indication: COLORECTAL CANCER
     Dosage: 6 MG/KG, Q2WK
     Route: 041
     Dates: start: 20100927, end: 20100927
  3. FLUOROURACIL [Suspect]
     Route: 041
     Dates: start: 20100927, end: 20101103
  4. ALOXI [Concomitant]
     Dosage: UNK
     Route: 042
  5. DEXAMETHASONE [Concomitant]
     Dosage: UNK
     Route: 048
  6. PRIMPERAN TAB [Concomitant]
     Dosage: UNK
     Route: 048
  7. CALCIUM LEVOFOLINATE [Concomitant]
     Indication: COLORECTAL CANCER
     Route: 041
     Dates: start: 20100927, end: 20101103
  8. GRANISETRON HCL [Concomitant]
     Dosage: UNK
     Route: 042
  9. DECADRON [Concomitant]
     Dosage: UNK
     Route: 042
  10. PANITUMUMAB [Suspect]
     Dosage: 6 MG/KG, Q2WK
     Route: 041
     Dates: start: 20101101, end: 20101101
  11. ELPLAT [Suspect]
     Indication: COLORECTAL CANCER
     Route: 041
     Dates: start: 20100927, end: 20101103
  12. FLUOROURACIL [Suspect]
     Indication: COLORECTAL CANCER
     Route: 040
     Dates: start: 20100927, end: 20101103

REACTIONS (4)
  - FATIGUE [None]
  - DERMATITIS [None]
  - MALAISE [None]
  - ASTHENIA [None]
